FAERS Safety Report 5357517-5 (Version None)
Quarter: 2007Q2

REPORT INFORMATION
  Report Type: 
  Country: None (occurrence: None)
  Receive Date: 20070530
  Receipt Date: 20070306
  Transmission Date: 20071010
  Serious: Yes (Other)
  Sender: FDA-Public Use
  Company Number: US_0502112695

PATIENT
  Age: 33 Year
  Sex: Female
  Weight: 122.9 kg

DRUGS (6)
  1. ZYPREXA [Suspect]
     Indication: BIPOLAR I DISORDER
     Dates: start: 19990101
  2. ABILIFY [Concomitant]
  3. HALDOL [Concomitant]
  4. DEPAKOTE [Concomitant]
  5. WELLBUTRIN [Concomitant]
  6. ZOLOFT [Concomitant]

REACTIONS (5)
  - DIABETES MELLITUS [None]
  - DIABETIC NEUROPATHY [None]
  - OBESITY [None]
  - PANCREATITIS [None]
  - PANCREATITIS CHRONIC [None]
